FAERS Safety Report 8077224-8 (Version None)
Quarter: 2012Q1

REPORT INFORMATION
  Report Type: 
  Country: None (occurrence: None)
  Receive Date: 20120127
  Receipt Date: 20120123
  Transmission Date: 20120608
  Serious: Yes (Other)
  Sender: FDA-Public Use
  Company Number: BR-ABBOTT-12P-020-0896854-00

PATIENT
  Sex: Female
  Weight: 68 kg

DRUGS (6)
  1. HUMIRA [Suspect]
  2. HUMIRA [Suspect]
     Indication: CROHN'S DISEASE
     Route: 058
     Dates: start: 20101119, end: 20101119
  3. MESALAMINE [Concomitant]
     Indication: CROHN'S DISEASE
     Dosage: IN THE MORNING AND AT NIGHT
     Route: 048
  4. HUMIRA [Suspect]
     Route: 058
     Dates: start: 20120113
  5. AZATHIOPRINE [Concomitant]
     Indication: CROHN'S DISEASE
     Dosage: AT NIGHT
     Route: 048
  6. HUMIRA [Suspect]
     Route: 058

REACTIONS (3)
  - ONYCHOCLASIS [None]
  - DRY SKIN [None]
  - INCISIONAL HERNIA [None]
